FAERS Safety Report 8428587-2 (Version None)
Quarter: 2012Q2

REPORT INFORMATION
  Report Type: 
  Country: None (occurrence: None)
  Receive Date: 20120605
  Receipt Date: 20120521
  Transmission Date: 20120825
  Serious: Yes (Death)
  Sender: FDA-Public Use
  Company Number: 201205063

PATIENT
  Age: 58 Year
  Sex: Male

DRUGS (10)
  1. ZOLPIDEM [Concomitant]
  2. NUMOISYN (SORBITOL) [Concomitant]
  3. PILOCARPINE [Concomitant]
  4. METFFORMIN HYDROCHLORIDE [Concomitant]
  5. SIMVASTATIN [Concomitant]
  6. ENDOCET (PARACETAMOL) [Concomitant]
  7. QUINAPRIL HCL [Concomitant]
  8. XIAFLEX [Suspect]
     Indication: DUPUYTREN'S CONTRACTURE
     Dosage: 1 IN 1 D, INTRALESIONAL
     Route: 026
     Dates: start: 20120312, end: 20120312
  9. OMEPRAZOLE [Concomitant]
  10. AMLODIPINE [Concomitant]

REACTIONS (1)
  - HAEMORRHAGIC STROKE [None]
